FAERS Safety Report 10414350 (Version 1)
Quarter: 2014Q3

REPORT INFORMATION
  Report Type: Spontaneous
  Country: FR (occurrence: FR)
  Receive Date: 20140828
  Receipt Date: 20140828
  Transmission Date: 20150326
  Serious: Yes (Hospitalization)
  Sender: FDA-Public Use
  Company Number: FR-ACCORD-025576

PATIENT
  Age: 72 Year
  Sex: Male
  Weight: 84 kg

DRUGS (3)
  1. FLUOROURACIL. [Concomitant]
     Active Substance: FLUOROURACIL
     Dates: start: 20140723
  2. CISPLATIN. [Concomitant]
     Active Substance: CISPLATIN
  3. ACCORD DOCETAXEL [Suspect]
     Active Substance: DOCETAXEL
     Indication: PRODUCT USED FOR UNKNOWN INDICATION
     Dates: start: 20140723

REACTIONS (3)
  - No adverse event [Unknown]
  - Incorrect dose administered [Unknown]
  - Drug dispensing error [Unknown]

NARRATIVE: CASE EVENT DATE: 20140723
